FAERS Safety Report 21773768 (Version 1)
Quarter: 2022Q4

REPORT INFORMATION
  Report Type: Report from Study
  Country: EG (occurrence: EG)
  Receive Date: 20221223
  Receipt Date: 20221223
  Transmission Date: 20230113
  Serious: Yes (Other)
  Sender: FDA-Public Use
  Company Number: EG-002147023-NVSC2022EG295637

PATIENT
  Sex: Male

DRUGS (3)
  1. COSENTYX [Suspect]
     Active Substance: SECUKINUMAB
     Indication: Ankylosing spondylitis
     Dosage: UNK UNK, OTHER (ONE DOSE INITIALLY, THEN AFTER A WEEK, THEN AFTER TWO WEEKS  THEN AFTER A MONTH AND
     Route: 058
     Dates: start: 2020
  2. COSENTYX [Suspect]
     Active Substance: SECUKINUMAB
     Dosage: UNK UNK, OTHER (ONE PREFILLED PEN AT DAY ONE THEN 1 PEN AFTER 2 WEEKS THEN  1 PREFILLED PEN AFTER A
     Route: 058
     Dates: start: 202108
  3. COSENTYX [Suspect]
     Active Substance: SECUKINUMAB
     Dosage: 150 MG, QMO
     Route: 058

REACTIONS (8)
  - Ankylosing spondylitis [Recovered/Resolved]
  - Hypokinesia [Recovered/Resolved]
  - Pain [Recovered/Resolved]
  - Peripheral swelling [Recovered/Resolved]
  - Joint swelling [Recovered/Resolved]
  - Bone pain [Recovered/Resolved]
  - Fatigue [Unknown]
  - Product use issue [Unknown]

NARRATIVE: CASE EVENT DATE: 20200101
